FAERS Safety Report 18052172 (Version 4)
Quarter: 2020Q3

REPORT INFORMATION
  Report Type: Report from Study
  Country: AU (occurrence: AU)
  Receive Date: 20200721
  Receipt Date: 20200821
  Transmission Date: 20201103
  Serious: Yes (Death, Life-Threatening, Hospitalization)
  Sender: FDA-Public Use
  Company Number: AU-REGENERON PHARMACEUTICALS, INC.-2020-38936

PATIENT

DRUGS (16)
  1. MAXIDEX OPHTHALMIC                 /00016001/ [Concomitant]
     Indication: OCULAR HYPERTENSION
     Dosage: 1 DF, QD
     Route: 047
     Dates: start: 2003
  2. SPIRACTIN                          /00006201/ [Concomitant]
     Active Substance: SPIRONOLACTONE
     Indication: HYPERTENSION
     Dosage: 12.5 MG, QD
     Route: 048
     Dates: start: 2011
  3. OLMETEC PLUS [Concomitant]
     Active Substance: HYDROCHLOROTHIAZIDE\OLMESARTAN MEDOXOMIL
     Indication: HYPERTENSION
     Dosage: 40/25 MG, QD
     Route: 048
     Dates: start: 201906
  4. ASPIRIN                            /00002701/ [Concomitant]
     Active Substance: ASPIRIN
     Indication: MYOCARDIAL INFARCTION
     Dosage: 100 MG, QD
     Route: 048
     Dates: start: 201901
  5. PREGABALIN. [Concomitant]
     Active Substance: PREGABALIN
     Indication: NECK PAIN
     Dosage: 75 MG, QD
     Route: 048
     Dates: start: 20200506
  6. PALEXIA [Concomitant]
     Active Substance: TAPENTADOL HYDROCHLORIDE
     Indication: NECK PAIN
     Dosage: 100 MG, TID
     Route: 048
     Dates: start: 20200415, end: 20200515
  7. ATORVASTATIN                       /01326106/ [Concomitant]
     Indication: HYPERCHOLESTEROLAEMIA
     Dosage: 80 MG, QD
     Route: 048
     Dates: start: 2014
  8. NITROLINGUAL [Concomitant]
     Active Substance: NITROGLYCERIN
     Indication: CORONARY ARTERY BYPASS
     Dosage: 400 ?G, AS NECESSARY
     Route: 048
     Dates: start: 2014
  9. PARACETAMOL [Concomitant]
     Active Substance: ACETAMINOPHEN
     Indication: NECK PAIN
     Dosage: 1000 MG, AS NECESSARY
     Route: 048
     Dates: start: 20190829
  10. TEMAZEPAM. [Concomitant]
     Active Substance: TEMAZEPAM
     Indication: NECK PAIN
     Dosage: 10 MG, AS NECESSARY
     Route: 048
     Dates: start: 20200415
  11. DURIDE                             /00653001/ [Concomitant]
     Indication: HYPERTENSION
     Dosage: 60 MG, QD
     Route: 048
     Dates: start: 201401, end: 20200617
  12. ALLOPURINOL. [Concomitant]
     Active Substance: ALLOPURINOL
     Indication: GOUT
     Dosage: 150 MG, QD
     Route: 048
     Dates: start: 2009
  13. SOMAC [Concomitant]
     Active Substance: PANTOPRAZOLE SODIUM
     Indication: GASTROOESOPHAGEAL REFLUX DISEASE
     Dosage: 40 MG, QD
     Route: 048
     Dates: start: 201403, end: 20200704
  14. VASOCARDOL [Concomitant]
     Indication: HYPERTENSION
     Dosage: 240 MG, QD
     Dates: start: 201906, end: 20200702
  15. CEMIPLIMAB [Suspect]
     Active Substance: CEMIPLIMAB
     Indication: SQUAMOUS CELL CARCINOMA OF SKIN
     Dosage: 600 MG, Q4W
     Route: 042
     Dates: start: 20190828, end: 20200506
  16. PRAZOSIN. [Concomitant]
     Active Substance: PRAZOSIN
     Indication: HYPERTENSION
     Dosage: 1 MG, QD
     Route: 048
     Dates: start: 2011, end: 20200702

REACTIONS (5)
  - Sepsis [Not Recovered/Not Resolved]
  - Encephalopathy [Fatal]
  - Hypotension [Not Recovered/Not Resolved]
  - Pneumonia bacterial [Not Recovered/Not Resolved]
  - Lower respiratory tract infection [Recovered/Resolved]

NARRATIVE: CASE EVENT DATE: 20200514
